FAERS Safety Report 7386777-4 (Version None)
Quarter: 2011Q1

REPORT INFORMATION
  Report Type: 
  Country: None (occurrence: None)
  Receive Date: 20110331
  Receipt Date: 20110322
  Transmission Date: 20110831
  Serious: Yes (Hospitalization)
  Sender: FDA-Public Use
  Company Number: B0709158A

PATIENT
  Age: 45 Year
  Sex: Female

DRUGS (2)
  1. ALLI [Suspect]
     Dosage: 120MG PER DAY
     Route: 048
  2. LEVOTHYROXINE SODIUM [Concomitant]

REACTIONS (9)
  - HYPERHIDROSIS [None]
  - HEADACHE [None]
  - SKIN DISCOLOURATION [None]
  - HYPOAESTHESIA [None]
  - VERTIGO [None]
  - DIZZINESS [None]
  - AUTOIMMUNE DISORDER [None]
  - DRUG INTERACTION [None]
  - SYNCOPE [None]
